FAERS Safety Report 4717568-8 (Version None)
Quarter: 2005Q3

REPORT INFORMATION
  Report Type: 
  Country: None (occurrence: None)
  Receive Date: 20050712
  Receipt Date: 20050315
  Transmission Date: 20060218
  Serious: Yes (Hospitalization)
  Sender: FDA-Public Use
  Company Number: 2005S1000044

PATIENT
  Age: 58 Year
  Sex: Female
  Weight: 91 kg

DRUGS (8)
  1. CUBICIN [Suspect]
     Indication: CELLULITIS
     Dosage: 500 MG;Q24H;IV
     Route: 042
     Dates: start: 20050302, end: 20050304
  2. PIOGLITAZONE HCL [Concomitant]
  3. VERAPAMIL [Concomitant]
  4. TELMISARTAN [Concomitant]
  5. METOPROLOL [Concomitant]
  6. BUMETANIDE [Concomitant]
  7. ASPIRIN [Concomitant]
  8. LORAZEPAM [Concomitant]

REACTIONS (5)
  - ALANINE AMINOTRANSFERASE INCREASED [None]
  - ASPARTATE AMINOTRANSFERASE INCREASED [None]
  - BLOOD CREATINE [None]
  - BLOOD LACTATE DEHYDROGENASE INCREASED [None]
  - MYALGIA [None]
